FAERS Safety Report 10261005 (Version 1)
Quarter: 2014Q2

REPORT INFORMATION
  Report Type: Spontaneous
  Country: US (occurrence: None)
  Receive Date: 20140623
  Receipt Date: 20140623
  Transmission Date: 20141212
  Serious: Yes (Life-Threatening, Hospitalization, Other)
  Sender: FDA-Public Use
  Company Number: SYM-2014-22093

PATIENT
  Age: 38 Year
  Sex: Female

DRUGS (3)
  1. WELLBUTRIN XL [Suspect]
     Indication: DEPRESSION
     Dosage: 9000 MG, 30 IN 1 D, ORAL
     Route: 048
     Dates: start: 201405, end: 20140527
  2. CELEXA [Concomitant]
  3. MIRTAZAPINE (MIRTAZAPINE) [Concomitant]

REACTIONS (5)
  - Convulsion [None]
  - Intentional overdose [None]
  - Rash [None]
  - Pyrexia [None]
  - Blood creatine phosphokinase increased [None]
